FAERS Safety Report 15293556 (Version 2)
Quarter: 2018Q4

REPORT INFORMATION
  Report Type: Spontaneous
  Country: ES (occurrence: ES)
  Receive Date: 20180820
  Receipt Date: 20180907
  Transmission Date: 20190204
  Serious: Yes (Other)
  Sender: FDA-Public Use
  Company Number: ES-SUN PHARMACEUTICAL INDUSTRIES LTD-2018R1-181625

PATIENT
  Age: 33 Year
  Sex: Male

DRUGS (4)
  1. FERROUS SULFATE. [Concomitant]
     Active Substance: FERROUS SULFATE
     Indication: PRODUCT USED FOR UNKNOWN INDICATION
     Dosage: 210 MG DAILY (2 TABLETS PER DAY)
     Route: 048
  2. PREDNISOLONE. [Concomitant]
     Active Substance: PREDNISOLONE
     Indication: PLATELET COUNT DECREASED
     Dosage: 5 MG / DAY CURRENTLY, STARTED ON 06/15/2017 PREDNISONE 60MG / DAY, 06/27/2017 CORTICOSTEROID DECREAS
     Route: 048
     Dates: start: 20170616
  3. TOCILIZUMAB (8289A) [Suspect]
     Active Substance: TOCILIZUMAB
     Indication: MUCKLE-WELLS SYNDROME
     Dosage: 1 DF 4/WEEK (4 MG/KG/4SEM)
     Route: 042
     Dates: start: 20120316, end: 20180502
  4. ALLOPURINOL. [Suspect]
     Active Substance: ALLOPURINOL
     Indication: PRODUCT USED FOR UNKNOWN INDICATION
     Dosage: 150 MG, QD (150 MG/DIA)
     Route: 048
     Dates: start: 2014

REACTIONS (1)
  - Thrombocytopenia [Not Recovered/Not Resolved]

NARRATIVE: CASE EVENT DATE: 20150519
